FAERS Safety Report 5620261-0 (Version None)
Quarter: 2008Q1

REPORT INFORMATION
  Report Type: 
  Country: None (occurrence: None)
  Receive Date: 20080208
  Receipt Date: 20080201
  Transmission Date: 20080703
  Serious: Yes (Hospitalization)
  Sender: FDA-Public Use
  Company Number: B0506467A

PATIENT
  Age: 61 Year
  Sex: Female
  Weight: 57.5 kg

DRUGS (2)
  1. LAPATINIB [Suspect]
     Route: 048
     Dates: start: 20080118, end: 20080201
  2. CAPECITABINE [Suspect]
     Route: 048
     Dates: start: 20080118, end: 20080129

REACTIONS (8)
  - DEHYDRATION [None]
  - DRUG TOXICITY [None]
  - HYPOTENSION [None]
  - MOUTH ULCERATION [None]
  - ORAL PAIN [None]
  - PAIN IN EXTREMITY [None]
  - SKIN ULCER [None]
  - VOMITING [None]
